FAERS Safety Report 4808134-4 (Version None)
Quarter: 2005Q4

REPORT INFORMATION
  Report Type: 
  Country: None (occurrence: None)
  Receive Date: 20051021
  Receipt Date: 20040730
  Transmission Date: 20060501
  Serious: No
  Sender: FDA-Public Use
  Company Number: USA040874193

PATIENT
  Age: 70 Year
  Sex: Male

DRUGS (2)
  1. ZYPREXA [Suspect]
     Dosage: 15 MG DAY
     Dates: start: 20040723, end: 20040725
  2. ABILIFY [Concomitant]

REACTIONS (2)
  - PYREXIA [None]
  - WHITE BLOOD CELL COUNT DECREASED [None]
